FAERS Safety Report 19422972 (Version 1)
Quarter: 2021Q2

REPORT INFORMATION
  Report Type: Spontaneous
  Country: US (occurrence: US)
  Receive Date: 20210616
  Receipt Date: 20210616
  Transmission Date: 20210717
  Serious: Yes (Hospitalization)
  Sender: FDA-Public Use
  Company Number: US-SA-2021SA191954

PATIENT
  Sex: Male

DRUGS (2)
  1. LANTUS SOLOSTAR [Suspect]
     Active Substance: INSULIN GLARGINE
     Indication: DIABETES MELLITUS
     Dosage: 50 IU, QD
     Route: 065
  2. BREXELL [RIVASTIGMINE] [Concomitant]
     Active Substance: RIVASTIGMINE
     Route: 065

REACTIONS (5)
  - Weight decreased [Unknown]
  - Vision blurred [Unknown]
  - Product dose omission issue [Unknown]
  - Product storage error [Unknown]
  - Blood glucose increased [Unknown]
